FAERS Safety Report 4875441-9 (Version None)
Quarter: 2006Q1

REPORT INFORMATION
  Report Type: 
  Country: None (occurrence: None)
  Receive Date: 20060109
  Receipt Date: 20060103
  Transmission Date: 20060701
  Serious: Yes (Other)
  Sender: FDA-Public Use
  Company Number: 2006UW00195

PATIENT
  Sex: Male

DRUGS (1)
  1. IRESSA [Suspect]
     Route: 048
     Dates: start: 20020716

REACTIONS (3)
  - ANAEMIA [None]
  - DEEP VEIN THROMBOSIS [None]
  - MOUTH HAEMORRHAGE [None]
